FAERS Safety Report 13209479 (Version 1)
Quarter: 2017Q1

REPORT INFORMATION
  Report Type: Spontaneous
  Country: GB (occurrence: GB)
  Receive Date: 20170209
  Receipt Date: 20170209
  Transmission Date: 20170428
  Serious: Yes (Hospitalization)
  Sender: FDA-Public Use
  Company Number: GB-ALSI-201700047

PATIENT
  Age: 51 Year
  Sex: Male

DRUGS (1)
  1. OXYGEN- AIR LIQUIDE UK [Suspect]
     Active Substance: OXYGEN
     Indication: PRODUCT USED FOR UNKNOWN INDICATION
     Route: 055

REACTIONS (3)
  - Intentional product misuse [Not Recovered/Not Resolved]
  - Thermal burn [Not Recovered/Not Resolved]
  - Accident [Not Recovered/Not Resolved]
